FAERS Safety Report 9643705 (Version 1)
Quarter: 2013Q4

REPORT INFORMATION
  Report Type: Report from Study
  Country: US (occurrence: US)
  Receive Date: 20131024
  Receipt Date: 20131024
  Transmission Date: 20140711
  Serious: Yes (Hospitalization)
  Sender: FDA-Public Use
  Company Number: US-PFIZER INC-2013292732

PATIENT
  Age: 60 Year
  Sex: Male

DRUGS (3)
  1. PHENYTOIN [Suspect]
     Indication: CONVULSION
     Dosage: 300 MG, 3X/DAY
  2. METHYLDOPA [Concomitant]
     Indication: HYPERTENSION
     Dosage: UNK
  3. HYDROCHLOROTHIAZIDE [Concomitant]
     Indication: HYPERTENSION
     Dosage: UNK

REACTIONS (7)
  - Accidental overdose [Recovered/Resolved]
  - Asterixis [Recovered/Resolved]
  - Ataxia [Recovered/Resolved]
  - Nystagmus [Recovered/Resolved]
  - Confusional state [Recovered/Resolved]
  - Dysarthria [Recovered/Resolved]
  - Anticonvulsant drug level increased [Unknown]
